FAERS Safety Report 24745380 (Version 2)
Quarter: 2024Q4

REPORT INFORMATION
  Report Type: Spontaneous
  Country: GB (occurrence: GB)
  Receive Date: 20241217
  Receipt Date: 20241223
  Transmission Date: 20250115
  Serious: Yes (Other)
  Sender: CIPLA
  Company Number: GB-AMAROX PHARMA-AMR2024GB04432

PATIENT

DRUGS (1)
  1. RIVAROXABAN [Suspect]
     Active Substance: RIVAROXABAN
     Indication: Factor V Leiden mutation
     Dosage: 20 MILLIGRAM, QD
     Route: 065

REACTIONS (12)
  - Thrombosis [Unknown]
  - Brain fog [Unknown]
  - Vision blurred [Unknown]
  - Chest discomfort [Unknown]
  - Flatback syndrome [Unknown]
  - Chest pain [Unknown]
  - Headache [Unknown]
  - Dyspnoea [Unknown]
  - Drug ineffective [Unknown]
  - Product substitution issue [Unknown]
  - Fatigue [Unknown]
  - Back pain [Unknown]
